FAERS Safety Report 7093356-5 (Version None)
Quarter: 2010Q4

REPORT INFORMATION
  Report Type: 
  Country: None (occurrence: None)
  Receive Date: 20101110
  Receipt Date: 20101029
  Transmission Date: 20110411
  Serious: Yes (Other)
  Sender: FDA-Public Use
  Company Number: JP-SANOFI-AVENTIS-2010SA067099

PATIENT
  Age: 81 Year
  Sex: Female
  Weight: 60.2 kg

DRUGS (13)
  1. BLINDED THERAPY [Suspect]
     Route: 048
     Dates: start: 20100212, end: 20100507
  2. CLOPIDOGREL BISULFATE [Suspect]
     Route: 048
     Dates: start: 20100508, end: 20100928
  3. LEVODOPA [Concomitant]
     Route: 048
     Dates: start: 20091201
  4. NIFEDIPINE [Concomitant]
     Indication: HYPERTENSION
     Route: 048
     Dates: start: 20091201
  5. FUROSEMIDE [Concomitant]
     Indication: HYPERTENSION
     Route: 048
     Dates: start: 20100101
  6. DISOPYRAMIDE [Concomitant]
     Indication: ARRHYTHMIA PROPHYLAXIS
     Route: 048
     Dates: start: 20091201
  7. EBASTINE [Concomitant]
     Route: 048
     Dates: start: 20100226
  8. BEPOTASTINE BESILATE [Concomitant]
     Route: 048
     Dates: start: 20100226
  9. BROTIZOLAM [Concomitant]
     Indication: INSOMNIA
     Route: 048
     Dates: start: 20100101
  10. HERBAL PREPARATION [Concomitant]
     Indication: INSOMNIA
     Route: 048
     Dates: start: 20100213
  11. ARTIST [Concomitant]
     Indication: ARRHYTHMIA
     Route: 048
     Dates: start: 20100928
  12. VASOLAN [Concomitant]
     Indication: ARRHYTHMIA
     Route: 048
     Dates: start: 20101004
  13. ACETYLSALICYLIC ACID/ALUMINIUM GLYCINATE/MAGNESIUM CARBONATE [Concomitant]
     Indication: THROMBOSIS PROPHYLAXIS
     Route: 048
     Dates: start: 20100929

REACTIONS (1)
  - MULTIPLE MYELOMA [None]
